FAERS Safety Report 10200645 (Version 2)
Quarter: 2014Q2

REPORT INFORMATION
  Report Type: Spontaneous
  Country: US (occurrence: US)
  Receive Date: 20140528
  Receipt Date: 20140606
  Transmission Date: 20141212
  Serious: No
  Sender: FDA-Public Use
  Company Number: US-009507513-1405USA004131

PATIENT
  Age: 45 Year
  Sex: Female

DRUGS (5)
  1. OXYTROL FOR WOMEN [Suspect]
     Indication: POLLAKIURIA
     Dosage: 1 PATCH FOR 4 DAYS
     Route: 062
     Dates: start: 20140328, end: 20140410
  2. LEVOXYL [Concomitant]
  3. CALCIUM (UNSPECIFIED) [Concomitant]
  4. VITAMINS (UNSPECIFIED) [Concomitant]
  5. VITAMIN D (UNSPECIFIED) [Concomitant]

REACTIONS (2)
  - Application site rash [Recovered/Resolved]
  - Drug ineffective [Unknown]
